FAERS Safety Report 7530174-5 (Version None)
Quarter: 2011Q2

REPORT INFORMATION
  Report Type: 
  Country: None (occurrence: None)
  Receive Date: 20110607
  Receipt Date: 20110525
  Transmission Date: 20111010
  Serious: Yes (Hospitalization)
  Sender: FDA-Public Use
  Company Number: GB-BAYER-2011-047442

PATIENT
  Age: 64 Year
  Sex: Female
  Weight: 57.9 kg

DRUGS (18)
  1. SORAFENIB (RAF KINASE INHIBITOR) [Suspect]
     Dosage: 200 MG, QD
     Route: 048
     Dates: start: 20110505
  2. PEPPERMINT OIL [Concomitant]
     Indication: ABDOMINAL PAIN
     Dosage: 1-2 CAPSULES PRN
     Route: 048
     Dates: start: 20100810
  3. WIND EZE [Concomitant]
     Indication: ERUCTATION
     Dosage: 125 MG PRN
     Route: 048
     Dates: start: 20110219
  4. SORAFENIB (RAF KINASE INHIBITOR) [Suspect]
     Indication: NEUROENDOCRINE CARCINOMA
     Dosage: 400 MG, QOD
     Route: 048
     Dates: start: 20060521, end: 20110504
  5. OMEPRAZOLE [Concomitant]
     Indication: DUODENAL ULCER
     Dosage: 80 MG TOTAL DAILY DOSE
     Route: 048
     Dates: start: 20100616
  6. ACETAMINOPHEN [Concomitant]
     Indication: HEADACHE
  7. METOCLOPRAMIDE HYDROCHLORIDE [Concomitant]
     Indication: NAUSEA
     Dosage: 60 MG TOTAL DAILY DOSE
     Route: 048
     Dates: start: 20110404
  8. CYCLIZINE [Concomitant]
     Indication: VOMITING
  9. CODEINE SULFATE [Concomitant]
     Indication: ANALGESIC THERAPY
     Dosage: 30-60 MG PRN
     Route: 048
     Dates: start: 20090228
  10. ORAMORPH SR [Concomitant]
     Indication: ANALGESIC THERAPY
     Dosage: 10 MG PRRN
     Route: 048
     Dates: start: 20100803
  11. TRAMADOL HCL [Concomitant]
     Indication: ANALGESIC THERAPY
     Dosage: 50-100 MG PRN
     Route: 048
     Dates: start: 20100621
  12. LOPERAMIDE [Concomitant]
     Indication: DIARRHOEA
     Dosage: 2 MG PRN
     Route: 048
     Dates: start: 20061209
  13. LORATADINE [Concomitant]
     Indication: RHINITIS ALLERGIC
     Dosage: 10 MG PRN
     Route: 048
     Dates: start: 20080821
  14. METOCLOPRAMIDE HYDROCHLORIDE [Concomitant]
     Indication: VOMITING
  15. ZOPICLONE [Concomitant]
     Indication: INSOMNIA
     Dosage: 7.5 MG TOTAL DAILY DOSE
     Route: 048
     Dates: start: 20060105
  16. ZOPICLONE [Concomitant]
     Indication: FATIGUE
  17. ACETAMINOPHEN [Concomitant]
     Indication: PAIN
     Dosage: UNK UNK, PRN
     Route: 048
     Dates: start: 20060202
  18. CYCLIZINE [Concomitant]
     Indication: NAUSEA
     Dosage: 50 MG PRN
     Route: 048
     Dates: start: 20110407

REACTIONS (1)
  - DUODENAL OBSTRUCTION [None]
